FAERS Safety Report 18260327 (Version 1)
Quarter: 2020Q3

REPORT INFORMATION
  Report Type: Spontaneous
  Country: GB (occurrence: GB)
  Receive Date: 20200914
  Receipt Date: 20200914
  Transmission Date: 20201103
  Serious: Yes (Disabling)
  Sender: FDA-Public Use
  Company Number: GB-AUROBINDO-AUR-APL-2020-047149

PATIENT
  Age: 54 Year
  Sex: Male

DRUGS (10)
  1. VORICONAZOLE FILM COATED TABLET [Suspect]
     Active Substance: VORICONAZOLE
     Dosage: 900 MILLIGRAM, ONCE A DAY
     Route: 048
     Dates: start: 20200624, end: 20200810
  2. VORICONAZOLE FILM COATED TABLET [Suspect]
     Active Substance: VORICONAZOLE
     Dosage: 700 MILLIGRAM, ONCE A DAY
     Route: 048
     Dates: start: 20200511, end: 20200602
  3. LEVETIRACETAM. [Concomitant]
     Active Substance: LEVETIRACETAM
     Indication: PRODUCT USED FOR UNKNOWN INDICATION
     Dosage: 500 MILLIGRAM, ONCE A DAY
     Route: 065
  4. FLUCYTOSINE. [Concomitant]
     Active Substance: FLUCYTOSINE
     Indication: PRODUCT USED FOR UNKNOWN INDICATION
     Dosage: 2.5G/250ML
     Route: 042
  5. VORICONAZOLE FILM COATED TABLET [Suspect]
     Active Substance: VORICONAZOLE
     Dosage: 760 MILLIGRAM, ONCE A DAY
     Route: 048
     Dates: start: 20200603, end: 20200623
  6. VORICONAZOLE FILM COATED TABLET [Suspect]
     Active Substance: VORICONAZOLE
     Dosage: UNK
  7. AMBISOME [Concomitant]
     Active Substance: AMPHOTERICIN B
     Indication: PRODUCT USED FOR UNKNOWN INDICATION
     Dosage: 350 MILLIGRAM, ONCE A DAY
     Route: 042
  8. COLECALCIFEROL [Concomitant]
     Active Substance: CHOLECALCIFEROL
     Indication: PRODUCT USED FOR UNKNOWN INDICATION
     Dosage: 800 INTERNATIONAL UNIT, ONCE A DAY
     Route: 048
  9. VORICONAZOLE FILM COATED TABLET [Suspect]
     Active Substance: VORICONAZOLE
     Indication: MENINGITIS CRYPTOCOCCAL
     Dosage: 400 MILLIGRAM, ONCE A DAY
     Route: 048
     Dates: start: 20200409, end: 20200423
  10. VORICONAZOLE FILM COATED TABLET [Suspect]
     Active Substance: VORICONAZOLE
     Dosage: 600 MILLIGRAM, ONCE A DAY
     Route: 048
     Dates: start: 20200424, end: 20200510

REACTIONS (5)
  - Hypophosphataemia [Recovering/Resolving]
  - Photosensitivity reaction [Recovering/Resolving]
  - Erythema [Recovering/Resolving]
  - Paraesthesia [Recovered/Resolved with Sequelae]
  - Hypoaesthesia [Recovered/Resolved]

NARRATIVE: CASE EVENT DATE: 20200409
